FAERS Safety Report 4303454-4 (Version None)
Quarter: 2004Q1

REPORT INFORMATION
  Report Type: 
  Country: None (occurrence: None)
  Receive Date: 20040223
  Receipt Date: 20040212
  Transmission Date: 20041129
  Serious: Yes (Life-Threatening, Hospitalization)
  Sender: FDA-Public Use
  Company Number: 2003-10-1069

PATIENT
  Age: 28 Year
  Sex: Male

DRUGS (2)
  1. CLARITIN [Suspect]
     Indication: RASH PRURITIC
     Dosage: ORAL
     Route: 048
     Dates: start: 20030815, end: 20030819
  2. CLAMOXYL [Concomitant]

REACTIONS (20)
  - ANOREXIA [None]
  - ASCITES [None]
  - ASTHENIA [None]
  - BIOPSY KIDNEY ABNORMAL [None]
  - ECHOGRAPHY ABNORMAL [None]
  - GENERAL PHYSICAL HEALTH DETERIORATION [None]
  - HAEMODIALYSIS [None]
  - HAEMOGLOBIN DECREASED [None]
  - HAEMOLYSIS [None]
  - HAEMOLYTIC ANAEMIA [None]
  - HEPATOMEGALY [None]
  - OEDEMA [None]
  - PROTEINURIA [None]
  - PURPURA [None]
  - PYREXIA [None]
  - RENAL FAILURE [None]
  - RENAL FAILURE ACUTE [None]
  - STOOLS WATERY [None]
  - VIRAL INFECTION [None]
  - VOMITING [None]
